FAERS Safety Report 4985651-8 (Version None)
Quarter: 2006Q2

REPORT INFORMATION
  Report Type: 
  Country: None (occurrence: None)
  Receive Date: 20060421
  Receipt Date: 20060405
  Transmission Date: 20061013
  Serious: Yes (Death, Hospitalization)
  Sender: FDA-Public Use
  Company Number: A-US2005-11193

PATIENT
  Age: 29 Year
  Sex: Male

DRUGS (9)
  1. TRACLEER [Suspect]
     Indication: PULMONARY HYPERTENSION
     Dosage: 62.5 MG, BID, ORAL
     Route: 048
     Dates: start: 20051114, end: 20060120
  2. CARVEDILOL [Concomitant]
  3. ALLOPURINOL [Concomitant]
  4. WARFARIN SODIUM [Concomitant]
  5. SPIRONOLACTONE [Concomitant]
  6. FUROSEMIDE [Concomitant]
  7. PERINDOPRIL [Concomitant]
  8. DIGOXIN [Concomitant]
  9. OSTELIN (ERGOCALCIFEROL) [Concomitant]

REACTIONS (8)
  - BLOOD ALKALINE PHOSPHATASE INCREASED [None]
  - BLOOD CULTURE POSITIVE [None]
  - GENERAL PHYSICAL HEALTH DETERIORATION [None]
  - OEDEMA PERIPHERAL [None]
  - RIGHT VENTRICULAR FAILURE [None]
  - SEPTIC SHOCK [None]
  - STAPHYLOCOCCAL INFECTION [None]
  - THERAPY NON-RESPONDER [None]
